FAERS Safety Report 18509686 (Version 3)
Quarter: 2022Q1

REPORT INFORMATION
  Report Type: Spontaneous
  Country: US (occurrence: US)
  Receive Date: 20201117
  Receipt Date: 20220322
  Transmission Date: 20220423
  Serious: Yes (Other)
  Sender: FDA-Public Use
  Company Number: US-SAARTEMIS-SAC202011120385

PATIENT
  Age: 44 Year
  Sex: Male

DRUGS (2)
  1. ZANTAC [Suspect]
     Active Substance: RANITIDINE HYDROCHLORIDE
     Indication: Dyspepsia
     Dosage: UNK
     Dates: start: 201304, end: 201604
  2. ZANTAC [Suspect]
     Active Substance: RANITIDINE HYDROCHLORIDE
     Dosage: 75 MG FREQUENCY-OCCASIONAL
     Dates: start: 201301, end: 201601

REACTIONS (2)
  - Prostatic disorder [Unknown]
  - Prostate cancer stage IV [Unknown]

NARRATIVE: CASE EVENT DATE: 20180101
